FAERS Safety Report 9355933 (Version 1)
Quarter: 2013Q2

REPORT INFORMATION
  Report Type: Report from Study
  Country: NL (occurrence: NL)
  Receive Date: 20130619
  Receipt Date: 20130619
  Transmission Date: 20140414
  Serious: Yes (Hospitalization)
  Sender: FDA-Public Use
  Company Number: NL-MYLANLABS-2013S1012551

PATIENT
  Sex: Male

DRUGS (4)
  1. VORICONAZOLE [Suspect]
     Indication: ANTIFUNGAL PROPHYLAXIS
     Dosage: EITHER 150MG OR 200MG TWICE DAILY
     Route: 048
  2. METHOTREXATE [Interacting]
     Indication: B PRECURSOR TYPE ACUTE LEUKAEMIA
     Dosage: LOW-DOSE: 20-30 MG/M2 ON D0, 15, 34 OF VORICONAZOLE
     Route: 037
  3. METHOTREXATE [Interacting]
     Indication: B PRECURSOR TYPE ACUTE LEUKAEMIA
     Dosage: HIGH-DOSE: 3000-5000 MG/M2
     Route: 065
  4. CYTARABINE [Suspect]
     Route: 065

REACTIONS (4)
  - Photosensitivity reaction [Recovered/Resolved]
  - Cheilitis [Recovered/Resolved]
  - Drug interaction [Recovered/Resolved]
  - Rash macular [Unknown]
